FAERS Safety Report 18205796 (Version 1)
Quarter: 2020Q3

REPORT INFORMATION
  Report Type: Spontaneous
  Country: US (occurrence: US)
  Receive Date: 20200827
  Receipt Date: 20200827
  Transmission Date: 20201103
  Serious: No
  Sender: FDA-Public Use
  Company Number: US-TEVA-2020-US-1819966

PATIENT
  Age: 72 Year
  Sex: Female

DRUGS (1)
  1. ESTRADIOL TEVA [Suspect]
     Active Substance: ESTRADIOL
     Route: 048
     Dates: end: 202008

REACTIONS (2)
  - Product substitution issue [Unknown]
  - Dyspepsia [Unknown]
